FAERS Safety Report 13461410 (Version 1)
Quarter: 2017Q2

REPORT INFORMATION
  Report Type: Spontaneous
  Country: US (occurrence: US)
  Receive Date: 20170419
  Receipt Date: 20170419
  Transmission Date: 20170830
  Serious: Yes (Other)
  Sender: FDA-Public Use
  Company Number: None

PATIENT
  Age: 41 Year
  Sex: Female
  Weight: 108.9 kg

DRUGS (9)
  1. BYDUREON [Suspect]
     Active Substance: EXENATIDE
     Indication: BLOOD GLUCOSE DECREASED
     Dosage: ?          QUANTITY:1 PEN (2 MG);OTHER FREQUENCY:WEEKLY;?
     Route: 058
     Dates: start: 20170218, end: 20170408
  2. VITAMIN D [Concomitant]
     Active Substance: CHOLECALCIFEROL
  3. VITAMIN B12 [Concomitant]
     Active Substance: CYANOCOBALAMIN
  4. LEVOXYL [Concomitant]
     Active Substance: LEVOTHYROXINE SODIUM
  5. COQ10 [Concomitant]
     Active Substance: UBIDECARENONE
  6. MULTI VITAMIN [Concomitant]
     Active Substance: VITAMINS
  7. MIGLITOL. [Concomitant]
     Active Substance: MIGLITOL
  8. FISH OIL [Concomitant]
     Active Substance: FISH OIL
  9. BYDUREON [Suspect]
     Active Substance: EXENATIDE
     Indication: BLOOD INSULIN INCREASED
     Dosage: ?          QUANTITY:1 PEN (2 MG);OTHER FREQUENCY:WEEKLY;?
     Route: 058
     Dates: start: 20170218, end: 20170408

REACTIONS (5)
  - Injection site bruising [None]
  - Injection site inflammation [None]
  - Injection site haemorrhage [None]
  - Injection site nodule [None]
  - Hypersensitivity [None]

NARRATIVE: CASE EVENT DATE: 20170401
